FAERS Safety Report 5135536-1 (Version None)
Quarter: 2006Q4

REPORT INFORMATION
  Report Type: 
  Country: None (occurrence: None)
  Receive Date: 20061024
  Receipt Date: 20061024
  Transmission Date: 20070319
  Serious: Yes (Hospitalization)
  Sender: FDA-Public Use
  Company Number: None

PATIENT
  Age: 22 Year
  Sex: Female
  Weight: 44.4525 kg

DRUGS (1)
  1. LAMICTAL [Suspect]
     Indication: CONVULSION
     Dosage: 25MG DAILY PO
     Route: 048
     Dates: start: 20060927, end: 20061009

REACTIONS (6)
  - BLISTER [None]
  - ERYTHEMA [None]
  - FEELING HOT [None]
  - LIP DISCOLOURATION [None]
  - PRURITUS [None]
  - RASH [None]
